FAERS Safety Report 24547941 (Version 1)
Quarter: 2024Q4

REPORT INFORMATION
  Report Type: Spontaneous
  Country: FR (occurrence: FR)
  Receive Date: 20241025
  Receipt Date: 20241025
  Transmission Date: 20250115
  Serious: Yes (Life-Threatening)
  Sender: ACCORD
  Company Number: None

PATIENT
  Age: 76 Year
  Sex: Female
  Weight: 50.9 kg

DRUGS (13)
  1. PACLITAXEL [Suspect]
     Active Substance: PACLITAXEL
     Indication: Squamous cell carcinoma of the tongue
     Dates: start: 20240822, end: 20240822
  2. COVERAM [Concomitant]
     Active Substance: AMLODIPINE\PERINDOPRIL
     Dosage: 5 MG/10 MG
  3. BISOPROLOL FUMARATE [Concomitant]
     Active Substance: BISOPROLOL FUMARATE
  4. FUROSEMIDE [Concomitant]
     Active Substance: FUROSEMIDE
  5. SPIRONOLACTONE [Concomitant]
     Active Substance: SPIRONOLACTONE
  6. KARDEGIC [Concomitant]
     Active Substance: ASPIRIN DL-LYSINE
  7. ROSUVASTATIN [Concomitant]
     Active Substance: ROSUVASTATIN
  8. PANTOPRAZOLE [Concomitant]
     Active Substance: PANTOPRAZOLE
  9. METFORMIN [Concomitant]
     Active Substance: METFORMIN HYDROCHLORIDE
  10. GLICLAZIDE [Concomitant]
     Active Substance: GLICLAZIDE
  11. HERBALS\SAW PALMETTO [Concomitant]
     Active Substance: HERBALS\SAW PALMETTO
  12. FERROUS SULFATE\FOLIC ACID [Concomitant]
     Active Substance: FERROUS SULFATE\FOLIC ACID
  13. LEVOTHYROXINE SODIUM [Concomitant]
     Active Substance: LEVOTHYROXINE SODIUM

REACTIONS (1)
  - Stress cardiomyopathy [Recovered/Resolved]

NARRATIVE: CASE EVENT DATE: 20240822
